FAERS Safety Report 14832029 (Version 1)
Quarter: 2018Q2

REPORT INFORMATION
  Report Type: Spontaneous
  Country: US (occurrence: US)
  Receive Date: 20180501
  Receipt Date: 20180501
  Transmission Date: 20180711
  Serious: Yes (Hospitalization)
  Sender: FDA-Public Use
  Company Number: US-ASTRAZENECA-2018SE57541

PATIENT
  Sex: Female
  Weight: 64 kg

DRUGS (2)
  1. ALBUTEROL. [Concomitant]
     Active Substance: ALBUTEROL
     Indication: INHALATION THERAPY
     Dosage: UNKNOWN
     Route: 065
  2. PULMICORT FLEXHALER [Suspect]
     Active Substance: BUDESONIDE
     Indication: ASTHMA
     Dosage: 180UG/INHAL TWO TIMES A DAY
     Route: 055

REACTIONS (9)
  - Type 2 diabetes mellitus [Unknown]
  - Pancreatic cyst [Unknown]
  - Amnesia [Unknown]
  - Hepatitis C [Recovered/Resolved]
  - Hepatic cyst [Unknown]
  - Renal cyst [Unknown]
  - Hepatic cirrhosis [Unknown]
  - Pancreatitis [Unknown]
  - Drug dose omission [Unknown]
